FAERS Safety Report 17187600 (Version 2)
Quarter: 2020Q1

REPORT INFORMATION
  Report Type: Spontaneous
  Country: US (occurrence: US)
  Receive Date: 20191220
  Receipt Date: 20200113
  Transmission Date: 20200409
  Serious: No
  Sender: FDA-Public Use
  Company Number: US-NEUROCRINE BIOSCIENCES INC.-2019NBI03803

PATIENT
  Age: 61 Year
  Sex: Male

DRUGS (10)
  1. INTRANASAL KETAMINE [Concomitant]
     Indication: BIPOLAR I DISORDER
     Dates: start: 20190718
  2. INGREZZA [Suspect]
     Active Substance: VALBENAZINE
     Route: 048
     Dates: start: 20191122, end: 20191128
  3. INGREZZA [Suspect]
     Active Substance: VALBENAZINE
     Indication: TARDIVE DYSKINESIA
     Dosage: AT BEDTIME
     Route: 048
     Dates: start: 20191116, end: 201911
  4. ESZOPICLONE. [Concomitant]
     Active Substance: ESZOPICLONE
     Indication: INSOMNIA
     Dosage: AT BEDTIME
     Route: 048
     Dates: start: 20171006
  5. LEVOTHYROXINE. [Concomitant]
     Active Substance: LEVOTHYROXINE
     Indication: HYPOTHYROIDISM
     Route: 048
     Dates: start: 20180420
  6. HYDROCHLOROTHIAZIDE. [Concomitant]
     Active Substance: HYDROCHLOROTHIAZIDE
     Indication: OEDEMA PERIPHERAL
     Route: 048
     Dates: start: 20181024
  7. BUPROPION. [Concomitant]
     Active Substance: BUPROPION
     Indication: BIPOLAR I DISORDER
     Dosage: AT BEDTIME
     Route: 048
     Dates: start: 20190524
  8. OXCARBAZEPINE. [Concomitant]
     Active Substance: OXCARBAZEPINE
     Indication: BIPOLAR I DISORDER
     Route: 048
     Dates: start: 20190808
  9. ABILIFY MAINTENA [Concomitant]
     Active Substance: ARIPIPRAZOLE
     Indication: BIPOLAR I DISORDER
     Dates: start: 20190211
  10. EPA [Concomitant]
     Indication: BIPOLAR I DISORDER
     Route: 048
     Dates: start: 20181024

REACTIONS (2)
  - Tardive dyskinesia [Recovered/Resolved]
  - Hypomania [Recovered/Resolved]

NARRATIVE: CASE EVENT DATE: 20191123
